FAERS Safety Report 8907393 (Version 1)
Quarter: 2012Q4

REPORT INFORMATION
  Report Type: 
  Country: RO (occurrence: RO)
  Receive Date: 20121114
  Receipt Date: 20121114
  Transmission Date: 20130627
  Serious: Yes (Other)
  Sender: FDA-Public Use
  Company Number: RO-ABBOTT-12P-135-1006338-00

PATIENT
  Sex: Female
  Weight: 98 kg

DRUGS (12)
  1. HUMIRA [Suspect]
     Indication: PSORIASIS
     Route: 058
     Dates: start: 201202
  2. MTX [Suspect]
     Indication: PSORIASIS
     Dosage: Weekly
     Route: 048
     Dates: start: 2004, end: 2007
  3. ARAVA [Suspect]
     Indication: PSORIASIS
     Dosage: 10 mg daily
     Route: 048
     Dates: start: 2004, end: 2005
  4. ARAVA [Suspect]
     Dosage: 10 mg daily
     Route: 048
     Dates: start: 2007, end: 2007
  5. REMICADE [Suspect]
     Indication: PSORIASIS
     Route: 042
     Dates: start: 200912, end: 201201
  6. PRENESA [Concomitant]
     Indication: HYPERTENSION
     Dosage: 10 mg daily
     Route: 048
  7. ISODINIT RETARD [Concomitant]
     Indication: MYOCARDIAL ISCHAEMIA
     Dosage: 20 mg daily
     Route: 048
  8. METOPROLOL [Concomitant]
     Indication: MYOCARDIAL ISCHAEMIA
     Route: 048
  9. HUMALOG [Concomitant]
     Indication: DIABETES MELLITUS
     Dosage: 100 ul (form strength), 26-32-22 ul (unit dose), and 80 ul (daily): ampoules
     Route: 058
  10. LANTUS [Concomitant]
     Indication: DIABETES MELLITUS
     Dosage: 300 ul (form strength), 56-58 ul (unit dose), and 114 ul (daily): ampoules
     Route: 058
  11. GABARAN [Concomitant]
     Indication: DIABETIC NEUROPATHY
     Route: 048
  12. PRAVATOR [Concomitant]
     Indication: DYSLIPIDAEMIA
     Route: 047

REACTIONS (1)
  - Angiolipoma [Not Recovered/Not Resolved]
